FAERS Safety Report 4873442-8 (Version None)
Quarter: 2005Q4

REPORT INFORMATION
  Report Type: 
  Country: None (occurrence: None)
  Receive Date: 20051201
  Receipt Date: 20050817
  Transmission Date: 20060501
  Serious: No
  Sender: FDA-Public Use
  Company Number: 2005PV001344

PATIENT
  Age: 51 Year
  Sex: Female
  Weight: 165.5629 kg

DRUGS (8)
  1. BYETTA [Suspect]
     Indication: DIABETES MELLITUS NON-INSULIN-DEPENDENT
     Dosage: SEE IMAGE
     Route: 058
     Dates: start: 20050701, end: 20050810
  2. BYETTA [Suspect]
     Indication: DIABETES MELLITUS NON-INSULIN-DEPENDENT
     Dosage: SEE IMAGE
     Route: 058
     Dates: start: 20050811
  3. AVANDIA [Concomitant]
  4. AMARYL [Concomitant]
  5. MAXZIDE [Concomitant]
  6. CAPTOPRIL [Concomitant]
  7. HYTRIN [Concomitant]
  8. PRILOSEC [Concomitant]

REACTIONS (2)
  - DRUG EFFECT DECREASED [None]
  - WEIGHT DECREASED [None]
